FAERS Safety Report 7808801-4 (Version None)
Quarter: 2011Q4

REPORT INFORMATION
  Report Type: 
  Country: None (occurrence: None)
  Receive Date: 20111012
  Receipt Date: 20110930
  Transmission Date: 20120403
  Serious: No
  Sender: FDA-Public Use
  Company Number: PHEH2011US00612

PATIENT
  Sex: Female

DRUGS (6)
  1. ZYRTEC [Concomitant]
     Dosage: UNK UKN, UNK
  2. LEXAPRO [Concomitant]
     Dosage: UNK UKN, UNK
  3. TASIGNA [Suspect]
     Indication: CHRONIC MYELOID LEUKAEMIA
     Dosage: 400 MG, Q12H
     Route: 048
     Dates: start: 20110409
  4. ALLOPURINOL [Concomitant]
     Dosage: UNK UKN, UNK
  5. ASCORBIC ACID [Concomitant]
     Dosage: UNK UKN, UNK
  6. NEXIUM [Concomitant]
     Dosage: UNK UKN, UNK

REACTIONS (4)
  - CONCOMITANT DISEASE AGGRAVATED [None]
  - GASTROOESOPHAGEAL REFLUX DISEASE [None]
  - JOINT SWELLING [None]
  - GASTROINTESTINAL DISORDER [None]
